FAERS Safety Report 4831683-X (Version None)
Quarter: 2005Q4

REPORT INFORMATION
  Report Type: 
  Country: None (occurrence: None)
  Receive Date: 20051110
  Receipt Date: 20051026
  Transmission Date: 20060501
  Serious: Yes (Life-Threatening, Hospitalization)
  Sender: FDA-Public Use
  Company Number: THYM-10764

PATIENT
  Age: 64 Year
  Sex: Male
  Weight: 94.5 kg

DRUGS (2)
  1. THYMOGLOBULIN [Suspect]
     Indication: RENAL TRANSPLANT
     Dosage: 125 MG QS IV
     Route: 042
     Dates: start: 20050826, end: 20050829
  2. SOLU-MEDROL [Concomitant]

REACTIONS (17)
  - ARTHRALGIA [None]
  - ATRIAL FIBRILLATION [None]
  - CANDIDIASIS [None]
  - CLOSTRIDIUM DIFFICILE TOXIN TEST POSITIVE [None]
  - CULTURE URINE POSITIVE [None]
  - DEPRESSION [None]
  - FALL [None]
  - KIDNEY TRANSPLANT REJECTION [None]
  - LOBAR PNEUMONIA [None]
  - MORGANELLA INFECTION [None]
  - PNEUMONIA [None]
  - PSEUDOMONAS INFECTION [None]
  - RENAL FAILURE [None]
  - RENAL TUBULAR NECROSIS [None]
  - RESPIRATORY FAILURE [None]
  - URINARY TRACT INFECTION [None]
  - UROSEPSIS [None]
